FAERS Safety Report 19684870 (Version 1)
Quarter: 2021Q3

REPORT INFORMATION
  Report Type: Spontaneous
  Country: US (occurrence: US)
  Receive Date: 20210811
  Receipt Date: 20210811
  Transmission Date: 20211014
  Serious: Yes (Hospitalization)
  Sender: FDA-Public Use
  Company Number: None

PATIENT
  Age: 48 Year
  Sex: Female
  Weight: 112.5 kg

DRUGS (2)
  1. REGEN?COV [Concomitant]
     Active Substance: CASIRIVIMAB\IMDEVIMAB
     Dates: start: 20210809, end: 20210809
  2. REGEN?COV [Suspect]
     Active Substance: CASIRIVIMAB\IMDEVIMAB

REACTIONS (7)
  - Oxygen saturation decreased [None]
  - Heart rate decreased [None]
  - Hyperhidrosis [None]
  - Infusion related reaction [None]
  - Pallor [None]
  - Dyspnoea [None]
  - Vomiting [None]

NARRATIVE: CASE EVENT DATE: 20210809
